FAERS Safety Report 10167875 (Version 1)
Quarter: 2014Q2

REPORT INFORMATION
  Report Type: Spontaneous
  Country: US (occurrence: US)
  Receive Date: 20140512
  Receipt Date: 20140512
  Transmission Date: 20141212
  Serious: Yes (Other)
  Sender: FDA-Public Use
  Company Number: US-PFIZER INC-2014128437

PATIENT
  Sex: Male

DRUGS (3)
  1. LIPITOR [Suspect]
     Dosage: 40 MG, 1X/DAY
  2. ADVAIR DISKUS [Concomitant]
     Dosage: UNK
  3. TRIBENZOR [Concomitant]
     Dosage: 5 MG/12.5 MG/20 MG

REACTIONS (1)
  - Cardiac disorder [Unknown]
